FAERS Safety Report 8903237 (Version 1)
Quarter: 2012Q4

REPORT INFORMATION
  Report Type: 
  Country: US (occurrence: US)
  Receive Date: 20121112
  Receipt Date: 20121112
  Transmission Date: 20130627
  Serious: No
  Sender: FDA-Public Use
  Company Number: US-009507513-1211USA004012

PATIENT
  Age: 50 Year
  Sex: Male

DRUGS (1)
  1. JANUMET [Suspect]
     Indication: GLYCOSYLATED HAEMOGLOBIN INCREASED
     Dosage: 50/500 mg, bid
     Route: 048

REACTIONS (1)
  - Drug ineffective [Unknown]
